FAERS Safety Report 15174164 (Version 2)
Quarter: 2018Q4

REPORT INFORMATION
  Report Type: Report from Study
  Country: US (occurrence: US)
  Receive Date: 20180720
  Receipt Date: 20181017
  Transmission Date: 20190204
  Serious: No
  Sender: FDA-Public Use
  Company Number: US-AMGEN-USASL2018070597

PATIENT
  Age: 69 Year
  Sex: Male
  Weight: 104.31 kg

DRUGS (6)
  1. REPATHA [Suspect]
     Active Substance: EVOLOCUMAB
     Indication: TYPE IIA HYPERLIPIDAEMIA
  2. REPATHA [Suspect]
     Active Substance: EVOLOCUMAB
     Indication: LIPIDS ABNORMAL
     Dosage: 140 MG, Q2WK
     Route: 065
  3. REPATHA [Suspect]
     Active Substance: EVOLOCUMAB
     Indication: TYPE IIA HYPERLIPIDAEMIA
  4. ASPRIN [Concomitant]
     Active Substance: ASPIRIN
     Indication: BLOOD PRESSURE ABNORMAL
     Dosage: UNK UNK, QD
  5. REPATHA [Suspect]
     Active Substance: EVOLOCUMAB
     Indication: HYPERCHOLESTEROLAEMIA
     Dosage: 140 MG, Q2WK
     Route: 058
     Dates: start: 20180426
  6. VITAMINS [Concomitant]
     Active Substance: VITAMINS
     Indication: BLOOD PRESSURE ABNORMAL
     Dosage: UNK UNK, QD

REACTIONS (9)
  - Visual impairment [Unknown]
  - Joint stiffness [Unknown]
  - Injection site mass [Not Recovered/Not Resolved]
  - Injection site warmth [Unknown]
  - Injection site swelling [Recovered/Resolved]
  - Weight increased [Unknown]
  - Injection site erythema [Unknown]
  - Dizziness [Unknown]
  - Injection site pain [Unknown]

NARRATIVE: CASE EVENT DATE: 2018
